FAERS Safety Report 21083460 (Version 3)
Quarter: 2022Q4

REPORT INFORMATION
  Report Type: Spontaneous
  Country: US (occurrence: US)
  Receive Date: 20220714
  Receipt Date: 20221003
  Transmission Date: 20230112
  Serious: No
  Sender: FDA-Public Use
  Company Number: US-GALDERMA-US2022007077

PATIENT

DRUGS (1)
  1. MIRVASO [Suspect]
     Active Substance: BRIMONIDINE TARTRATE
     Indication: Rosacea
     Dosage: 1 DOSAGE FORM
     Route: 061

REACTIONS (2)
  - Skin injury [Not Recovered/Not Resolved]
  - Product container issue [Recovered/Resolved]
